FAERS Safety Report 19183808 (Version 1)
Quarter: 2021Q2

REPORT INFORMATION
  Report Type: Spontaneous
  Country: CA (occurrence: CA)
  Receive Date: 20210427
  Receipt Date: 20210427
  Transmission Date: 20210717
  Serious: Yes (Disabling, Other)
  Sender: FDA-Public Use
  Company Number: CA-EMCURE PHARMACEUTICALS LTD-2021-EPL-001358

PATIENT
  Age: 17 Year
  Sex: Male
  Weight: 68 kg

DRUGS (3)
  1. SERTRALINE [Suspect]
     Active Substance: SERTRALINE HYDROCHLORIDE
     Indication: PSYCHOTIC DISORDER
     Dosage: 1 EVERY 1 DAYS
     Route: 048
  2. OLANZAPINE. [Suspect]
     Active Substance: OLANZAPINE
     Indication: OBSESSIVE-COMPULSIVE DISORDER
     Dosage: 1 EVERY 1 DAYS
     Route: 048
  3. OLANZAPINE. [Suspect]
     Active Substance: OLANZAPINE
     Indication: AUTISM SPECTRUM DISORDER

REACTIONS (7)
  - Condition aggravated [Recovered/Resolved]
  - Drug intolerance [Recovered/Resolved]
  - Tremor [Recovered/Resolved]
  - Aggression [Recovered/Resolved]
  - Obsessive-compulsive symptom [Recovered/Resolved]
  - Therapeutic response decreased [Recovered/Resolved]
  - Product substitution issue [Recovered/Resolved]
